FAERS Safety Report 4805331-9 (Version None)
Quarter: 2005Q4

REPORT INFORMATION
  Report Type: 
  Country: None (occurrence: None)
  Receive Date: 20051018
  Receipt Date: 20051004
  Transmission Date: 20060501
  Serious: Yes (Other)
  Sender: FDA-Public Use
  Company Number: B0394069A

PATIENT
  Age: 3 Year
  Sex: Male

DRUGS (3)
  1. FLOVENT [Suspect]
     Indication: ASTHMA
     Dosage: YEARS
  2. ADVAIR DISKUS 100/50 [Suspect]
     Indication: ASTHMA
     Dosage: SEE DOSAGE TEXT
  3. LEUKOTRIENE [Concomitant]

REACTIONS (12)
  - EAR DISORDER [None]
  - HYPOGLYCAEMIA [None]
  - KETONURIA [None]
  - LOSS OF CONSCIOUSNESS [None]
  - MALAISE [None]
  - MUSCLE SPASMS [None]
  - ORAL INTAKE REDUCED [None]
  - PHARYNGEAL ERYTHEMA [None]
  - PYREXIA [None]
  - SECONDARY ADRENOCORTICAL INSUFFICIENCY [None]
  - URINE KETONE BODY PRESENT [None]
  - VOMITING [None]
